FAERS Safety Report 15839712 (Version 2)
Quarter: 2019Q1

REPORT INFORMATION
  Report Type: Spontaneous
  Country: US (occurrence: US)
  Receive Date: 20190117
  Receipt Date: 20190130
  Transmission Date: 20190417
  Serious: No
  Sender: FDA-Public Use
  Company Number: US-PFIZER INC-2019022460

PATIENT
  Age: 74 Year
  Sex: Female
  Weight: 110 kg

DRUGS (1)
  1. IBRANCE [Suspect]
     Active Substance: PALBOCICLIB
     Indication: BREAST CANCER METASTATIC
     Dosage: 125 MG, CYCLIC (D-1-21 Q 28 DAILY)
     Route: 048
     Dates: start: 20181116

REACTIONS (5)
  - Alopecia [Unknown]
  - Dizziness [Unknown]
  - Tumour marker increased [Unknown]
  - Fatigue [Unknown]
  - Headache [Unknown]
